FAERS Safety Report 6874973-1 (Version None)
Quarter: 2010Q3

REPORT INFORMATION
  Report Type: 
  Country: None (occurrence: None)
  Receive Date: 20100723
  Receipt Date: 20100709
  Transmission Date: 20110219
  Serious: Yes (Other)
  Sender: FDA-Public Use
  Company Number: 1000013499

PATIENT
  Sex: Female

DRUGS (2)
  1. ESCITALOPRAM [Suspect]
     Dosage: (5 MG)
  2. ESCITALOPRAM [Suspect]
     Dosage: (10 MG)

REACTIONS (5)
  - AGITATION [None]
  - ANXIETY [None]
  - FEELING ABNORMAL [None]
  - HOSTILITY [None]
  - THINKING ABNORMAL [None]
